FAERS Safety Report 9946082 (Version 1)
Quarter: 2014Q1

REPORT INFORMATION
  Report Type: Spontaneous
  Country: US (occurrence: US)
  Receive Date: 20140303
  Receipt Date: 20140303
  Transmission Date: 20141002
  Serious: No
  Sender: FDA-Public Use
  Company Number: US-AMGEN-USASP2013077369

PATIENT
  Age: 51 Year
  Sex: Male
  Weight: 68.93 kg

DRUGS (4)
  1. ENBREL [Suspect]
     Indication: PRODUCT USED FOR UNKNOWN INDICATION
     Dosage: 50 MG, QWK
     Route: 058
  2. FOLIC ACID [Concomitant]
     Dosage: 20 MG, UNK
  3. FLONASE                            /00972202/ [Concomitant]
     Dosage: 0.05 %, UNK
  4. METHOTREXATE [Concomitant]
     Dosage: 50 MG/2 ML

REACTIONS (2)
  - Injection site pruritus [Unknown]
  - Injection site erythema [Unknown]
